FAERS Safety Report 6219100-9 (Version None)
Quarter: 2009Q2

REPORT INFORMATION
  Report Type: 
  Country: None (occurrence: None)
  Receive Date: 20090609
  Receipt Date: 20090528
  Transmission Date: 20091009
  Serious: Yes (Other)
  Sender: FDA-Public Use
  Company Number: JP-PFIZER INC-2009160332

PATIENT

DRUGS (1)
  1. ZITHROMAX [Suspect]
     Indication: NASOPHARYNGITIS

REACTIONS (1)
  - LOSS OF CONSCIOUSNESS [None]
